FAERS Safety Report 6710213-1 (Version None)
Quarter: 2010Q2

REPORT INFORMATION
  Report Type: 
  Country: None (occurrence: None)
  Receive Date: 20100430
  Receipt Date: 20100419
  Transmission Date: 20101027
  Serious: Yes (Hospitalization)
  Sender: FDA-Public Use
  Company Number: 6053447

PATIENT
  Age: 86 Year
  Sex: Female

DRUGS (14)
  1. LEVOTHYROXINE SODIUM [Suspect]
     Indication: DRUG USE FOR UNKNOWN INDICATION
     Dosage: ORAL
     Route: 048
  2. TEMERIT (NEBIVOLOL) (NEBIVOLOL) [Suspect]
     Indication: DRUG USE FOR UNKNOWN INDICATION
     Dosage: ORAL
     Route: 048
  3. ATACAND [Suspect]
     Indication: DRUG USE FOR UNKNOWN INDICATION
     Dosage: ORAL
     Route: 048
     Dates: end: 20090622
  4. OFLOXACIN [Suspect]
     Indication: STAPHYLOCOCCAL BACTERAEMIA
     Dosage: 1200 MG (300 MG, 4 IN 1 D), ORAL
     Route: 048
     Dates: start: 20090610, end: 20090625
  5. IXPRIM (ULTRACET) (TRAMADOL, PARACETAMOL) [Suspect]
     Indication: DRUG USE FOR UNKNOWN INDICATION
     Dosage: ORAL
     Route: 048
  6. CORTICOIDS NOS (CORTICOIDS NOS) [Suspect]
     Indication: THROMBOCYTOPENIA
     Dosage: 50 MG
  7. DIFFU-K (POTASSIUM CHLORIDE) (POTASSIUM CHLORIDE) [Concomitant]
  8. DIGOXINE (DIGOXIN) (DIGOXIN) [Concomitant]
  9. PREVISCAN (FLUINDIONE) (FLUINDIONE) [Concomitant]
  10. TEMESTA (LORAZEPAM) (LORAZEPAM) [Concomitant]
  11. ODRIK (TRANDOLAPRIL) (TRANDOLAPRIL) [Concomitant]
  12. ALDACTONE [Concomitant]
  13. CORDARONE (AMIODARONE HYDROCHLORIDE) (AMIODARONE HYDROCHLOIRIDE) [Concomitant]
  14. RIFADIN [Concomitant]
     Indication: STAPHYLOCOCCAL BACTERAEMIA
     Dosage: 1200 MG (300MG, 4 IN ID)
     Route: 048
     Dates: start: 20090610, end: 20090625

REACTIONS (11)
  - ALTERED STATE OF CONSCIOUSNESS [None]
  - ANAEMIA HAEMOLYTIC AUTOIMMUNE [None]
  - APHASIA [None]
  - CONVULSION [None]
  - DISORIENTATION [None]
  - DRUG LEVEL INCREASED [None]
  - EPISTAXIS [None]
  - FACIAL ASYMMETRY [None]
  - HAPTOGLOBIN DECREASED [None]
  - RENAL FAILURE [None]
  - STAPHYLOCOCCAL INFECTION [None]
